FAERS Safety Report 7874874-6 (Version None)
Quarter: 2011Q4

REPORT INFORMATION
  Report Type: 
  Country: None (occurrence: None)
  Receive Date: 20111031
  Receipt Date: 20111019
  Transmission Date: 20120403
  Serious: Yes (Death, Other)
  Sender: FDA-Public Use
  Company Number: US-BAYER-200940283NA

PATIENT
  Age: 82 Year
  Sex: Male
  Weight: 54 kg

DRUGS (26)
  1. LOVENOX [Concomitant]
     Dosage: UNK
     Route: 058
     Dates: start: 20030523
  2. LASIX [Concomitant]
     Dosage: 20 MG, UNK
     Route: 048
     Dates: start: 20030523
  3. LANOXIN [Concomitant]
  4. PROTAMINE SULFATE [Concomitant]
     Dosage: UNK
     Route: 042
     Dates: start: 20030525
  5. ACETYLSALICYLIC ACID SRT [Concomitant]
     Dosage: 325 MG, UNK
     Route: 048
     Dates: start: 20030523
  6. NITROGLYCERIN [Concomitant]
     Dosage: UNK
     Route: 042
     Dates: start: 20030523
  7. IMDUR [Concomitant]
     Dosage: UNK
     Route: 048
     Dates: start: 20030523
  8. ZESTRIL [Concomitant]
  9. DIOVAN [Concomitant]
  10. ANCEF [Concomitant]
     Dosage: 1 G, UNK
     Route: 042
     Dates: start: 20030525
  11. COMBIVENT [Concomitant]
  12. HEPARIN [Concomitant]
     Dosage: UNK
     Route: 042
     Dates: start: 20030525
  13. PLAVIX [Concomitant]
     Dosage: UNK
     Route: 048
     Dates: start: 20030523
  14. NITROGLYCERIN [Concomitant]
     Dosage: DRIP
  15. MECLIZINE [Concomitant]
     Dosage: UNK
  16. PREDNISONE [Concomitant]
  17. BENADRYL [Concomitant]
     Dosage: 25 MG, UNK
     Route: 042
     Dates: start: 20030525
  18. TRASYLOL [Suspect]
     Indication: CORONARY ARTERY BYPASS
     Dosage: 600MK VIA CADIOPULMONARY BYPASS PER PERFUSION RECORDS
     Route: 042
     Dates: start: 20030525, end: 20030525
  19. LASIX [Concomitant]
     Dosage: 20 MG/ 40 MG/ 20 MG
     Route: 042
     Dates: start: 20030525
  20. ISOSORBIDE MONONITRATE [Concomitant]
  21. DEMEROL [Concomitant]
     Dosage: 25 MG, UNK
     Route: 042
     Dates: start: 20030525
  22. LOPRESSOR [Concomitant]
     Dosage: 5 MG, UNK
     Route: 042
     Dates: start: 20030525
  23. ALBUTEROL [Concomitant]
  24. CARDURA [Concomitant]
  25. DOBUTAMINE HCL [Concomitant]
     Dosage: DRIP
     Route: 042
     Dates: start: 20030525
  26. AMIODARONE HCL [Concomitant]
     Dosage: BOLUS/DRIP
     Route: 042
     Dates: start: 20030525

REACTIONS (13)
  - RENAL INJURY [None]
  - FEAR [None]
  - MULTI-ORGAN FAILURE [None]
  - RENAL FAILURE [None]
  - UNEVALUABLE EVENT [None]
  - INJURY [None]
  - ANHEDONIA [None]
  - EMOTIONAL DISTRESS [None]
  - STRESS [None]
  - PAIN [None]
  - DEATH [None]
  - RENAL IMPAIRMENT [None]
  - ANXIETY [None]
